FAERS Safety Report 22939803 (Version 3)
Quarter: 2023Q4

REPORT INFORMATION
  Report Type: Spontaneous
  Country: US (occurrence: US)
  Receive Date: 20230913
  Receipt Date: 20231219
  Transmission Date: 20240110
  Serious: Yes (Other)
  Sender: FDA-Public Use
  Company Number: US-BRISTOL-MYERS SQUIBB COMPANY-2023-128849

PATIENT
  Age: 66 Year
  Sex: Male

DRUGS (1)
  1. THALOMID [Suspect]
     Active Substance: THALIDOMIDE
     Indication: Gastrointestinal angiodysplasia
     Dosage: TAKE 1 CAPSULE BY MOUTH TWICE A DAY.SWALLOW WHOLE, DO NOT BREAK, ON AN EMPTY STOMACH AT LEAST 1 HOUR
     Route: 048
     Dates: start: 20230909

REACTIONS (3)
  - Off label use [Unknown]
  - Flatulence [Recovering/Resolving]
  - Constipation [Not Recovered/Not Resolved]
